FAERS Safety Report 18711713 (Version 1)
Quarter: 2021Q1

REPORT INFORMATION
  Report Type: Spontaneous
  Country: US (occurrence: US)
  Receive Date: 20210107
  Receipt Date: 20210107
  Transmission Date: 20210419
  Serious: Yes (Death, Hospitalization)
  Sender: FDA-Public Use
  Company Number: US-BAYER-2020-287221

PATIENT
  Age: 52 Year
  Sex: Female

DRUGS (19)
  1. OLANZAPINE. [Suspect]
     Active Substance: OLANZAPINE
  2. DONAZ [Suspect]
     Active Substance: DONEPEZIL HYDROCHLORIDE
  3. DOXYCYCLINE. [Suspect]
     Active Substance: DOXYCYCLINE
  4. QUETIAPINE. [Suspect]
     Active Substance: QUETIAPINE
  5. BUPROPION. [Suspect]
     Active Substance: BUPROPION
  6. TRAZODONE [Suspect]
     Active Substance: TRAZODONE HYDROCHLORIDE
  7. INDOMETHACIN AGILA [Suspect]
     Active Substance: INDOMETHACIN SODIUM
  8. ESCITALOPRAM [Suspect]
     Active Substance: ESCITALOPRAM OXALATE
  9. CIPROFLOXACIN. [Suspect]
     Active Substance: CIPROFLOXACIN
  10. CIPROFLOXACIN MONOHYDROCHLORIDE [Suspect]
     Active Substance: CIPROFLOXACIN
  11. DOMIPREN [Suspect]
     Active Substance: DOMPERIDONE\OMEPRAZOLE SODIUM
  12. LITHIUM. [Suspect]
     Active Substance: LITHIUM
  13. HYOSCYAMINE. [Suspect]
     Active Substance: HYOSCYAMINE
  14. LORAZEPAM. [Suspect]
     Active Substance: LORAZEPAM
  15. LEFLUNOMIDE. [Suspect]
     Active Substance: LEFLUNOMIDE
  16. NITROFURANTOIN. [Suspect]
     Active Substance: NITROFURANTOIN
  17. NORTRIPTYLINE [Suspect]
     Active Substance: NORTRIPTYLINE
  18. PREGABALIN. [Suspect]
     Active Substance: PREGABALIN
  19. DIAZEPAM. [Suspect]
     Active Substance: DIAZEPAM

REACTIONS (2)
  - Toxicity to various agents [Fatal]
  - Completed suicide [Fatal]
